FAERS Safety Report 10368559 (Version 1)
Quarter: 2014Q3

REPORT INFORMATION
  Report Type: Spontaneous
  Country: US (occurrence: US)
  Receive Date: 20140807
  Receipt Date: 20140807
  Transmission Date: 20150326
  Serious: Yes (Hospitalization)
  Sender: FDA-Public Use
  Company Number: US-VIIV HEALTHCARE LIMITED-A1084119A

PATIENT
  Age: 61 Year
  Sex: Male

DRUGS (1)
  1. EPIVIR [Suspect]
     Active Substance: LAMIVUDINE
     Indication: HEART TRANSPLANT
     Dosage: 150MG UNKNOWN
     Route: 065
     Dates: start: 20120423

REACTIONS (2)
  - Respiratory tract infection viral [Unknown]
  - Off label use [Unknown]
